FAERS Safety Report 5622912-3 (Version None)
Quarter: 2008Q1

REPORT INFORMATION
  Report Type: 
  Country: None (occurrence: None)
  Receive Date: 20080206
  Receipt Date: 20080128
  Transmission Date: 20080703
  Serious: Yes (Death, Other)
  Sender: FDA-Public Use
  Company Number: 2007-03057

PATIENT
  Age: 71 Year
  Sex: Female
  Weight: 38 kg

DRUGS (6)
  1. VELCADE [Suspect]
     Indication: MULTIPLE MYELOMA
     Dosage: 1.60 MG, INTRAVENOUS
     Route: 042
     Dates: start: 20070319, end: 20070608
  2. MAGNESIUM OXIDE (MAGNESIUM OXIDE) [Concomitant]
  3. SELBEX (TEPRENONE) [Concomitant]
  4. NIZATIDINE [Concomitant]
  5. DIFLUCAN [Concomitant]
  6. ZOMETA [Concomitant]

REACTIONS (2)
  - DISEASE PROGRESSION [None]
  - HYPOAESTHESIA [None]
